FAERS Safety Report 5405935-9 (Version None)
Quarter: 2007Q3

REPORT INFORMATION
  Report Type: 
  Country: None (occurrence: None)
  Receive Date: 20070802
  Receipt Date: 20070726
  Transmission Date: 20080115
  Serious: Yes (Death)
  Sender: FDA-Public Use
  Company Number: 2007US001728

PATIENT
  Age: 54 Year
  Sex: Male
  Weight: 63.9 kg

DRUGS (5)
  1. PROGRAF [Suspect]
     Indication: KIDNEY TRANSPLANT REJECTION
     Dosage: 0.5 MG, BID, ORAL
     Route: 048
     Dates: start: 20051121, end: 20070725
  2. CELLCEPT [Suspect]
     Indication: KIDNEY TRANSPLANT REJECTION
     Dosage: 250 MG, BID, ORAL
     Route: 048
     Dates: end: 20070725
  3. NORVASC [Concomitant]
  4. METOPROLOL TARTRATE [Concomitant]
  5. VALCYTE [Concomitant]

REACTIONS (5)
  - FLUID RETENTION [None]
  - MULTI-ORGAN FAILURE [None]
  - PLEURAL EFFUSION [None]
  - RENAL FAILURE [None]
  - SPLENOMEGALY [None]
